FAERS Safety Report 8487944-9 (Version None)
Quarter: 2012Q3

REPORT INFORMATION
  Report Type: 
  Country: None (occurrence: None)
  Receive Date: 20120705
  Receipt Date: 20120626
  Transmission Date: 20120928
  Serious: Yes (Hospitalization, Other)
  Sender: FDA-Public Use
  Company Number: PHHY2012BR056243

PATIENT
  Sex: Female
  Weight: 103 kg

DRUGS (7)
  1. FORMOTEROL FUMARATE [Suspect]
     Dosage: 2 UKN, ONE INHALATION AT MORNING AND ONE INHALATION AT NIGHT
  2. XOLAIR [Suspect]
     Indication: ASTHMA
     Dosage: 150 MG, TWO AMPOULES PER MONTH
     Route: 058
     Dates: start: 20080101, end: 20120605
  3. KETOTIFEN FUMARATE [Concomitant]
     Dosage: UNK UKN, UNK
  4. COMBIVENT [Concomitant]
     Dosage: UNK UKN, UNK
  5. BEROTEC [Concomitant]
     Dosage: UNK UKN, UNK
  6. ALBUTEROL [Concomitant]
     Dosage: UNK UKN, UNK
  7. FORMOTEROL FUMARATE [Suspect]
     Indication: ASTHMA
     Dosage: 3 UKN, ONE INHALATION AT LUNCH AND TWO AT NIGHT
     Dates: start: 20050101

REACTIONS (2)
  - ASTHMA [None]
  - DIABETES MELLITUS [None]
